FAERS Safety Report 5125993-9 (Version None)
Quarter: 2006Q4

REPORT INFORMATION
  Report Type: 
  Country: None (occurrence: None)
  Receive Date: 20061010
  Receipt Date: 20061010
  Transmission Date: 20070319
  Serious: Yes (Hospitalization)
  Sender: FDA-Public Use
  Company Number: None

PATIENT
  Age: 75 Year
  Sex: Male
  Weight: 78.4723 kg

DRUGS (20)
  1. TAXOTERE [Suspect]
     Indication: NON-SMALL CELL LUNG CANCER
     Dosage: 20MG/M2 (40MG) TOTAL WKLY X 7 DAYS IV
     Route: 042
     Dates: start: 20060321
  2. TAXOTERE [Suspect]
     Indication: NON-SMALL CELL LUNG CANCER
     Dosage: 20MG/M2 (40MG) TOTAL WKLY X 7 DAYS IV
     Route: 042
     Dates: start: 20060328
  3. TAXOTERE [Suspect]
     Indication: NON-SMALL CELL LUNG CANCER
     Dosage: 20MG/M2 (40MG) TOTAL WKLY X 7 DAYS IV
     Route: 042
     Dates: start: 20060404
  4. TAXOTERE [Suspect]
     Indication: NON-SMALL CELL LUNG CANCER
     Dosage: 20MG/M2 (40MG) TOTAL WKLY X 7 DAYS IV
     Route: 042
     Dates: start: 20060411
  5. TAXOTERE [Suspect]
     Indication: NON-SMALL CELL LUNG CANCER
     Dosage: 20MG/M2 (40MG) TOTAL WKLY X 7 DAYS IV
     Route: 042
     Dates: start: 20060418
  6. TAXOTERE [Suspect]
     Indication: NON-SMALL CELL LUNG CANCER
     Dosage: 20MG/M2 (40MG) TOTAL WKLY X 7 DAYS IV
     Route: 042
     Dates: start: 20060426
  7. CARBOPLATIN [Suspect]
     Indication: NON-SMALL CELL LUNG CANCER
     Dosage: AUC2 WKLY X 7 DAYS IV
     Route: 042
     Dates: start: 20060321
  8. CARBOPLATIN [Suspect]
     Indication: NON-SMALL CELL LUNG CANCER
     Dosage: AUC2 WKLY X 7 DAYS IV
     Route: 042
     Dates: start: 20060328
  9. CARBOPLATIN [Suspect]
     Indication: NON-SMALL CELL LUNG CANCER
     Dosage: AUC2 WKLY X 7 DAYS IV
     Route: 042
     Dates: start: 20060404
  10. CARBOPLATIN [Suspect]
     Indication: NON-SMALL CELL LUNG CANCER
     Dosage: AUC2 WKLY X 7 DAYS IV
     Route: 042
     Dates: start: 20060411
  11. CARBOPLATIN [Suspect]
     Indication: NON-SMALL CELL LUNG CANCER
     Dosage: AUC2 WKLY X 7 DAYS IV
     Route: 042
     Dates: start: 20060418
  12. NIACIN [Concomitant]
  13. ATENOLOL [Concomitant]
  14. METFORMIN HCL [Concomitant]
  15. ISOBRIDE [Concomitant]
  16. LISINOPRIL [Concomitant]
  17. GLIPIZIDE [Concomitant]
  18. TERAZOSIN HCL [Concomitant]
  19. FINSTERIDE [Concomitant]
  20. GABAPENTIN [Concomitant]

REACTIONS (5)
  - ANAEMIA [None]
  - DEHYDRATION [None]
  - DIARRHOEA [None]
  - ORAL INTAKE REDUCED [None]
  - WEIGHT DECREASED [None]
